FAERS Safety Report 17157151 (Version 1)
Quarter: 2019Q4

REPORT INFORMATION
  Report Type: Report from Study
  Country: NL (occurrence: NL)
  Receive Date: 20191216
  Receipt Date: 20191216
  Transmission Date: 20200122
  Serious: Yes (Other)
  Sender: FDA-Public Use
  Company Number: NL-ACCORD-165457

PATIENT
  Age: 90 Year
  Sex: Male

DRUGS (4)
  1. ADALIMUMAB [Suspect]
     Active Substance: ADALIMUMAB
     Indication: RHEUMATOID ARTHRITIS
  2. METHOTREXATE. [Suspect]
     Active Substance: METHOTREXATE
     Indication: RHEUMATOID ARTHRITIS
  3. ETANERCEPT [Suspect]
     Active Substance: ETANERCEPT
     Indication: RHEUMATOID ARTHRITIS
  4. ETANERCEPT [Concomitant]
     Active Substance: ETANERCEPT
     Dosage: 50MG, 1X\/W
     Dates: start: 20100108, end: 20140318

REACTIONS (2)
  - Pruritus [Recovered/Resolved]
  - Haemorrhagic diathesis [Recovered/Resolved]

NARRATIVE: CASE EVENT DATE: 20140218
